FAERS Safety Report 21674067 (Version 1)
Quarter: 2022Q4

REPORT INFORMATION
  Report Type: Spontaneous
  Country: US (occurrence: US)
  Receive Date: 20221202
  Receipt Date: 20221202
  Transmission Date: 20230113
  Serious: No
  Sender: FDA-Public Use
  Company Number: US-Flexion Therapeutics, Inc.-2022FLS000015

PATIENT
  Age: 90 Year
  Sex: Male

DRUGS (2)
  1. ZILRETTA [Suspect]
     Active Substance: TRIAMCINOLONE ACETONIDE
     Indication: Arthritis
     Route: 014
     Dates: start: 20211025, end: 20211025
  2. CORTISONE [Concomitant]
     Active Substance: CORTISONE
     Indication: Arthritis

REACTIONS (2)
  - Arthralgia [Not Recovered/Not Resolved]
  - Therapeutic response shortened [Not Recovered/Not Resolved]
